FAERS Safety Report 5817781-2 (Version None)
Quarter: 2008Q3

REPORT INFORMATION
  Report Type: 
  Country: None (occurrence: None)
  Receive Date: 20080722
  Receipt Date: 20080714
  Transmission Date: 20090109
  Serious: Yes (Hospitalization)
  Sender: FDA-Public Use
  Company Number: GB-ELI_LILLY_AND_COMPANY-GB200804003274

PATIENT
  Sex: Female

DRUGS (5)
  1. CYMBALTA [Suspect]
     Indication: DEPRESSION
     Dosage: 60 MG, UNKNOWN
     Route: 048
     Dates: start: 20080211, end: 20080407
  2. DICLOFENAC SODIUM [Concomitant]
     Dosage: UNK, UNKNOWN
     Route: 065
  3. AMITRIPTYLINE HCL [Concomitant]
     Indication: PAIN
     Dosage: 20 MG, UNKNOWN
     Route: 048
  4. GABAPENTIN [Concomitant]
     Indication: PAIN
     Dosage: 600 MG, UNKNOWN
     Route: 048
  5. LACTULOSE [Concomitant]
     Indication: CONSTIPATION
     Dosage: 15 ML, UNKNOWN
     Route: 048

REACTIONS (2)
  - GASTROOESOPHAGEAL REFLUX DISEASE [None]
  - HAEMATEMESIS [None]
